FAERS Safety Report 4568331-2 (Version None)
Quarter: 2005Q1

REPORT INFORMATION
  Report Type: 
  Country: None (occurrence: None)
  Receive Date: 20050202
  Receipt Date: 20050124
  Transmission Date: 20050727
  Serious: Yes (Other)
  Sender: FDA-Public Use
  Company Number: US-GLAXOSMITHKLINE-A0541879A

PATIENT
  Age: 66 Year
  Sex: Female

DRUGS (2)
  1. SENSODYNE-F [Suspect]
     Indication: SENSITIVITY OF TEETH
     Dates: start: 19750101
  2. SENSODYNE-F [Suspect]
     Indication: SENSITIVITY OF TEETH
     Dates: start: 20050101

REACTIONS (5)
  - ORAL MUCOSAL EXFOLIATION [None]
  - PHARYNGOLARYNGEAL PAIN [None]
  - STOMATITIS [None]
  - THROAT CANCER [None]
  - TONSILLAR DISORDER [None]
